FAERS Safety Report 10949242 (Version 4)
Quarter: 2015Q2

REPORT INFORMATION
  Report Type: Report from Study
  Country: AU (occurrence: AU)
  Receive Date: 20150324
  Receipt Date: 20150416
  Transmission Date: 20150821
  Serious: Yes (Hospitalization, Other)
  Sender: FDA-Public Use
  Company Number: AU-ABBVIE-15P-008-1363912-00

PATIENT
  Age: 81 Year
  Sex: Male
  Weight: 75 kg

DRUGS (12)
  1. RIVASTIGMINE [Concomitant]
     Active Substance: RIVASTIGMINE
     Indication: COGNITIVE DISORDER
  2. LORAZEPAM. [Concomitant]
     Active Substance: LORAZEPAM
     Indication: AGITATION
     Dosage: 1-2MG PRN TDS
     Route: 048
     Dates: start: 20150319
  3. DUODOPA [Suspect]
     Active Substance: CARBIDOPA\LEVODOPA
     Indication: PARKINSON^S DISEASE
     Dosage: MD 16.5ML ED 4ML,CD 5.6 (0600-2100),CD 3.9 (2100-0600)
     Route: 050
     Dates: start: 20141111
  4. BLACKMORES BIO MAGNESIUM [Concomitant]
     Indication: MUSCLE SPASMS
  5. RIVASTIGMINE [Concomitant]
     Active Substance: RIVASTIGMINE
     Indication: ABNORMAL BEHAVIOUR
     Dosage: PATCH
     Dates: start: 20141111
  6. CRANBERRY + BUCHU [Concomitant]
     Indication: RENAL DISORDER
     Dosage: ONE TABLET
     Route: 048
  7. ATORVASTATIN [Concomitant]
     Active Substance: ATORVASTATIN
     Indication: HYPERCHOLESTEROLAEMIA
     Route: 048
  8. OOMPERIDONE [Concomitant]
     Indication: NAUSEA
     Dosage: 10MG TDS
     Route: 048
  9. LEVOTHYROXINE SODIUM. [Concomitant]
     Active Substance: LEVOTHYROXINE SODIUM
     Indication: THYROID HORMONE REPLACEMENT THERAPY
     Dosage: 100MCG, OD
     Route: 048
  10. FERROUS SULFATE W/FOLIC ACID [Concomitant]
     Indication: ANAEMIA
     Dosage: 270MG/0.3MG, OD
     Route: 048
  11. FERROUS SULFATE W/FOLIC ACID [Concomitant]
     Indication: HYPOVITAMINOSIS
  12. BLACKMORES BIO MAGNESIUM [Concomitant]
     Indication: HYPOVITAMINOSIS
     Dosage: ONE TABLET
     Route: 048

REACTIONS (15)
  - Cellulitis [Unknown]
  - Wound haemorrhage [Unknown]
  - Urinary tract infection pseudomonal [Recovered/Resolved]
  - Haematemesis [Unknown]
  - Orthostatic hypotension [Recovered/Resolved]
  - Cognitive disorder [Unknown]
  - Emotional distress [Unknown]
  - Fall [Unknown]
  - Disease progression [Unknown]
  - Fall [Unknown]
  - Cardiomegaly [Unknown]
  - Fall [Recovered/Resolved]
  - Laceration [Unknown]
  - Head injury [Unknown]
  - Impaired self-care [Unknown]

NARRATIVE: CASE EVENT DATE: 20150317
